FAERS Safety Report 6209802-2 (Version None)
Quarter: 2009Q2

REPORT INFORMATION
  Report Type: 
  Country: None (occurrence: None)
  Receive Date: 20090601
  Receipt Date: 20090520
  Transmission Date: 20091009
  Serious: Yes (Hospitalization)
  Sender: FDA-Public Use
  Company Number: PHHY2009DE19731

PATIENT
  Age: 60 Year
  Sex: Female

DRUGS (2)
  1. ZOMETA [Suspect]
     Route: 042
  2. ARIMIDEX [Concomitant]

REACTIONS (4)
  - OSTEONECROSIS [None]
  - OSTEOTOMY [None]
  - SEQUESTRECTOMY [None]
  - TOOTH EXTRACTION [None]
